FAERS Safety Report 6121998-X (Version None)
Quarter: 2009Q1

REPORT INFORMATION
  Report Type: 
  Country: None (occurrence: None)
  Receive Date: 20090316
  Receipt Date: 20090304
  Transmission Date: 20090719
  Serious: Yes (Death, Other)
  Sender: FDA-Public Use
  Company Number: 2009EK000015

PATIENT

DRUGS (12)
  1. RETAVASE [Suspect]
     Indication: ACUTE MYOCARDIAL INFARCTION
     Dosage: 5 U
  2. ABCIXIMAB (ABCIXIMAB) [Suspect]
     Indication: DRUG USE FOR UNKNOWN INDICATION
  3. TIROFIBAN (TIROFIBAN) [Suspect]
     Indication: DRUG USE FOR UNKNOWN INDICATION
  4. EPTIFIBITIDE [Suspect]
     Indication: DRUG USE FOR UNKNOWN INDICATION
  5. ASPIRIN [Concomitant]
  6. CLOPIDOGREL [Concomitant]
  7. GLYCOPROTEIN IIB/IIIA INHIBITOR [Concomitant]
  8. HEPARIN [Concomitant]
  9. BETA BLOCKER [Concomitant]
  10. DIRECT THROMBIN INHIBITOR [Concomitant]
  11. ANGIOTENSIN-CONVERTING ENZYME INHIBITOR [Concomitant]
  12. STATIN [Concomitant]

REACTIONS (8)
  - CARDIOGENIC SHOCK [None]
  - CEREBROVASCULAR ACCIDENT [None]
  - DIALYSIS [None]
  - DISEASE RECURRENCE [None]
  - HAEMORRHAGE [None]
  - HAEMORRHAGIC STROKE [None]
  - MYOCARDIAL INFARCTION [None]
  - RENAL FAILURE [None]
